FAERS Safety Report 6067010-2 (Version None)
Quarter: 2009Q1

REPORT INFORMATION
  Report Type: 
  Country: None (occurrence: None)
  Receive Date: 20090203
  Receipt Date: 20090122
  Transmission Date: 20090719
  Serious: Yes (Hospitalization)
  Sender: FDA-Public Use
  Company Number: 236790J08USA

PATIENT
  Age: 59 Year
  Sex: Female
  Weight: 50 kg

DRUGS (5)
  1. REBIF [Suspect]
     Indication: MULTIPLE SCLEROSIS RELAPSE
     Dosage: 44 MCG, 3 IN 1 WEEKS, SUBCUTANEOUS
     Route: 058
     Dates: start: 20070201
  2. LORTAB (VICODIN) [Concomitant]
  3. XANAX [Concomitant]
  4. ESTRADIOL [Concomitant]
  5. PREMARIN [Concomitant]

REACTIONS (11)
  - BITE [None]
  - BLOOD GLUCOSE INCREASED [None]
  - CERVICAL VERTEBRAL FRACTURE [None]
  - FACIAL BONES FRACTURE [None]
  - FALL [None]
  - MULTIPLE SCLEROSIS RELAPSE [None]
  - NERVE COMPRESSION [None]
  - PAIN IN EXTREMITY [None]
  - PELVIC FRACTURE [None]
  - RIB FRACTURE [None]
  - UPPER LIMB FRACTURE [None]
